FAERS Safety Report 13738792 (Version 1)
Quarter: 2017Q3

REPORT INFORMATION
  Report Type: Report from Study
  Country: US (occurrence: US)
  Receive Date: 20170710
  Receipt Date: 20170710
  Transmission Date: 20171127
  Serious: Yes (Other)
  Sender: FDA-Public Use
  Company Number: US-SAOL THERAPEUTICS-2017SAO00644

PATIENT
  Age: 57 Year
  Sex: Female

DRUGS (30)
  1. COMPOUNDED BACLOFEN [Suspect]
     Active Substance: BACLOFEN
     Dosage: 80.10 ?G, \DAY
     Dates: start: 20120615
  2. COMPOUNDED BACLOFEN [Suspect]
     Active Substance: BACLOFEN
     Dosage: 153.44 ?G, \DAY
     Route: 037
     Dates: start: 20120921, end: 20121030
  3. DILAUDID [Suspect]
     Active Substance: HYDROMORPHONE HYDROCHLORIDE
     Dosage: 0.262 MG, \DAY
     Route: 037
     Dates: start: 20120802, end: 20120921
  4. BUPIVACAINE. [Suspect]
     Active Substance: BUPIVACAINE
     Dosage: 5.391 MG, \DAY
     Route: 037
     Dates: start: 20121030
  5. COMPOUNDED BACLOFEN [Suspect]
     Active Substance: BACLOFEN
     Dosage: 90.02 ?G, \DAY
     Route: 037
     Dates: start: 20120610
  6. COMPOUNDED BACLOFEN [Suspect]
     Active Substance: BACLOFEN
     Dosage: 103.87 ?G, \DAY
     Route: 037
     Dates: start: 20120921, end: 20121030
  7. BUPIVACAINE. [Suspect]
     Active Substance: BUPIVACAINE
     Dosage: 17.043 MG, \DAY
     Route: 037
     Dates: start: 20121030, end: 20121115
  8. DILAUDID [Suspect]
     Active Substance: HYDROMORPHONE HYDROCHLORIDE
     Dosage: 0.383 MG, \DAY
     Route: 037
     Dates: start: 20120921, end: 20121030
  9. DILAUDID [Suspect]
     Active Substance: HYDROMORPHONE HYDROCHLORIDE
     Dosage: 0.5681 MG, \DAY
     Route: 037
     Dates: start: 20121030, end: 20121115
  10. BUPIVACAINE. [Suspect]
     Active Substance: BUPIVACAINE
     Dosage: 5.995 MG, \DAY
     Route: 037
     Dates: start: 20120802, end: 20120921
  11. BUPIVACAINE. [Suspect]
     Active Substance: BUPIVACAINE
     Dosage: 7.885 MG, \DAY
     Route: 037
     Dates: start: 20120802, end: 20120921
  12. BUPIVACAINE. [Suspect]
     Active Substance: BUPIVACAINE
     Dosage: 7.790 MG, \DAY
     Route: 037
     Dates: start: 20120921, end: 20121030
  13. BUPIVACAINE. [Suspect]
     Active Substance: BUPIVACAINE
     Dosage: 11.508 MG, \DAY
     Route: 037
     Dates: start: 20120921, end: 20121030
  14. BUPIVACAINE. [Suspect]
     Active Substance: BUPIVACAINE
     Dosage: 7.393 MG, \DAY
     Route: 037
     Dates: start: 20120615
  15. COMPOUNDED BACLOFEN [Suspect]
     Active Substance: BACLOFEN
     Dosage: 105.14 ?G, \DAY
     Route: 037
     Dates: start: 20120802, end: 20120921
  16. COMPOUNDED BACLOFEN [Suspect]
     Active Substance: BACLOFEN
     Dosage: 71.88 ?G, \DAY
     Route: 037
     Dates: start: 20121030
  17. DILAUDID [Suspect]
     Active Substance: HYDROMORPHONE HYDROCHLORIDE
     Dosage: 0.199 MG, \DAY
     Route: 037
     Dates: start: 20120802, end: 20120921
  18. DILAUDID [Suspect]
     Active Substance: HYDROMORPHONE HYDROCHLORIDE
     Dosage: 0.467 MG, \DAY
     Route: 037
     Dates: start: 20121115
  19. DILAUDID [Suspect]
     Active Substance: HYDROMORPHONE HYDROCHLORIDE
     Dosage: 271.8 ?G, \DAY
     Route: 037
     Dates: start: 20120615
  20. COMPOUNDED BACLOFEN [Suspect]
     Active Substance: BACLOFEN
     Dosage: 186.92 ?G, \DAY
     Route: 037
     Dates: start: 20121115
  21. COMPOUNDED BACLOFEN [Suspect]
     Active Substance: BACLOFEN
     Dosage: 108.72 ?G, \DAY
     Route: 037
     Dates: start: 20120615
  22. BUPIVACAINE. [Suspect]
     Active Substance: BUPIVACAINE
     Dosage: 5.447 MG, \DAY
     Route: 037
     Dates: start: 20120615
  23. COMPOUNDED BACLOFEN [Suspect]
     Active Substance: BACLOFEN
     Dosage: 227.23 ?G, \DAY
     Route: 037
     Dates: start: 20121030, end: 20121115
  24. BUPIVACAINE. [Suspect]
     Active Substance: BUPIVACAINE
     Dosage: 14.019 MG, \DAY
     Route: 037
     Dates: start: 20121115
  25. BUPIVACAINE. [Suspect]
     Active Substance: BUPIVACAINE
     Dosage: 6.121 MG, \DAY
     Route: 037
     Dates: start: 20120610
  26. DILAUDID [Suspect]
     Active Substance: HYDROMORPHONE HYDROCHLORIDE
     Dosage: 225.05 ?G, \DAY
     Route: 037
     Dates: start: 20120610
  27. DILAUDID [Suspect]
     Active Substance: HYDROMORPHONE HYDROCHLORIDE
     Dosage: 200.26 ?G, \DAY
     Route: 037
     Dates: start: 20120615
  28. COMPOUNDED BACLOFEN [Suspect]
     Active Substance: BACLOFEN
     Dosage: 79.93 ?G, \DAY
     Route: 037
     Dates: start: 20120802, end: 20120921
  29. DILAUDID [Suspect]
     Active Substance: HYDROMORPHONE HYDROCHLORIDE
     Dosage: 0.259 MG, \DAY
     Route: 037
     Dates: start: 20120921, end: 20121030
  30. DILAUDID [Suspect]
     Active Substance: HYDROMORPHONE HYDROCHLORIDE
     Dosage: 0.1797 MG, \DAY
     Route: 037
     Dates: start: 20121030

REACTIONS (6)
  - Somnolence [Recovered/Resolved]
  - Implant site pain [Not Recovered/Not Resolved]
  - Amnesia [Recovered/Resolved]
  - Hallucination [Recovered/Resolved]
  - Implant site extravasation [Not Recovered/Not Resolved]
  - Mental status changes [Recovered/Resolved]

NARRATIVE: CASE EVENT DATE: 20120625
